FAERS Safety Report 9821104 (Version 1)
Quarter: 2013Q4

REPORT INFORMATION
  Report Type: Spontaneous
  Country: US (occurrence: None)
  Receive Date: 20131028
  Receipt Date: 20131028
  Transmission Date: 20140711
  Serious: Yes (Other)
  Sender: FDA-Public Use
  Company Number: 2013US001377

PATIENT
  Age: 42 Year
  Sex: Male

DRUGS (4)
  1. ICLUSIG (PONATINIB) TABLET, 45MG [Suspect]
     Indication: ACUTE LYMPHOCYTIC LEUKAEMIA
     Route: 048
     Dates: end: 2013
  2. MAGNESIUM (MAGNESIUM) [Concomitant]
  3. VITAMINS NOS (VITAMINS NOS) [Concomitant]
  4. VALTREX (VALACICLOVIR HYDROCHLORIDE) [Concomitant]

REACTIONS (3)
  - Platelet count decreased [None]
  - Back pain [None]
  - Pain in extremity [None]
